FAERS Safety Report 12472244 (Version 1)
Quarter: 2016Q2

REPORT INFORMATION
  Report Type: Spontaneous
  Country: FR (occurrence: FR)
  Receive Date: 20160616
  Receipt Date: 20160616
  Transmission Date: 20160815
  Serious: Yes (Hospitalization)
  Sender: FDA-Public Use
  Company Number: FR-009507513-1606FRA006620

PATIENT
  Age: 56 Year
  Sex: Male

DRUGS (18)
  1. INEXIUM (ESOMEPRAZOLE SODIUM) [Concomitant]
     Active Substance: ESOMEPRAZOLE SODIUM
  2. STILNOX [Concomitant]
     Active Substance: ZOLPIDEM TARTRATE
  3. TEMOCILLIN [Concomitant]
     Active Substance: TEMOCILLIN
  4. ATARAX [Concomitant]
     Active Substance: HYDROXYZINE\HYDROXYZINE HYDROCHLORIDE
  5. DIFFU-K [Concomitant]
     Active Substance: POTASSIUM CHLORIDE
     Dosage: UNK
     Dates: start: 20160518
  6. ACETAMINOPHEN. [Concomitant]
     Active Substance: ACETAMINOPHEN
     Dosage: UNK
     Dates: start: 20160513
  7. CUBICIN [Suspect]
     Active Substance: DAPTOMYCIN
     Indication: INFECTION
     Dosage: 500 MG, QD
     Route: 065
     Dates: start: 20160414, end: 20160517
  8. ALBUTEROL. [Concomitant]
     Active Substance: ALBUTEROL
  9. VFEND [Concomitant]
     Active Substance: VORICONAZOLE
     Dosage: UNK
     Dates: start: 20160412
  10. HEPARIN CALCIUM [Concomitant]
     Active Substance: HEPARIN CALCIUM
  11. CEFAZOLIN [Suspect]
     Active Substance: CEFAZOLIN
     Indication: INFECTION
     Dosage: UNK
     Route: 065
     Dates: start: 20160414, end: 20160517
  12. MEROPENEM. [Suspect]
     Active Substance: MEROPENEM
     Indication: INFECTION
     Dosage: 2 G, BID
     Route: 042
     Dates: start: 20160517, end: 20160520
  13. AMIKACIN [Suspect]
     Active Substance: AMIKACIN
     Indication: INFECTION
     Dosage: 2 G, QD
     Route: 065
     Dates: start: 20160517, end: 2016
  14. ORBENINE [Suspect]
     Active Substance: CLOXACILLIN SODIUM
     Indication: INFECTION
     Dosage: 2 G, QID
     Route: 065
     Dates: start: 201604, end: 20160517
  15. LEVOFLOXACIN. [Suspect]
     Active Substance: LEVOFLOXACIN
     Indication: INFECTION
     Dosage: UNK
     Route: 065
     Dates: start: 20160518, end: 20160520
  16. AMLOR [Concomitant]
     Active Substance: AMLODIPINE BESYLATE
  17. XANAX [Concomitant]
     Active Substance: ALPRAZOLAM
  18. NEFOPAM [Concomitant]
     Active Substance: NEFOPAM

REACTIONS (2)
  - Pancytopenia [Recovering/Resolving]
  - Leukopenia [Recovering/Resolving]

NARRATIVE: CASE EVENT DATE: 20160519
